FAERS Safety Report 22062795 (Version 1)
Quarter: 2023Q1

REPORT INFORMATION
  Report Type: Spontaneous
  Country: JP (occurrence: JP)
  Receive Date: 20230306
  Receipt Date: 20230306
  Transmission Date: 20230418
  Serious: Yes (Death, Hospitalization)
  Sender: FDA-Public Use
  Company Number: JP-SPECGX-T202300735

PATIENT
  Age: 5 Decade
  Sex: Male

DRUGS (16)
  1. METHADONE [Suspect]
     Active Substance: METHADONE HYDROCHLORIDE
     Indication: Cancer pain
     Dosage: UNK
     Route: 048
  2. METHADONE [Suspect]
     Active Substance: METHADONE HYDROCHLORIDE
     Dosage: 40 MILLIGRAM, DOSE INCREASED
     Route: 048
  3. OXYCODONE HYDROCHLORIDE [Concomitant]
     Active Substance: OXYCODONE HYDROCHLORIDE
     Indication: Proctalgia
     Dosage: 5 TO 10 MG/DOSE AS NEEDED
     Route: 048
  4. OXYCODONE HYDROCHLORIDE [Concomitant]
     Active Substance: OXYCODONE HYDROCHLORIDE
     Dosage: UNK, FREQUENCY DECREASED
     Route: 048
  5. OXYCODONE HYDROCHLORIDE [Concomitant]
     Active Substance: OXYCODONE HYDROCHLORIDE
     Dosage: UNK, FREQUENCY INCREASED
     Route: 048
  6. PREGABALIN [Concomitant]
     Active Substance: PREGABALIN
     Indication: Proctalgia
     Dosage: 150 MILLIGRAM, QD
     Route: 048
  7. PREGABALIN [Concomitant]
     Active Substance: PREGABALIN
     Dosage: UNK, DOSE INCREASED
     Route: 048
  8. MIDAZOLAM [Concomitant]
     Active Substance: MIDAZOLAM
     Indication: Sedation
     Dosage: UNK
     Route: 065
  9. FENTANYL CITRATE [Concomitant]
     Active Substance: FENTANYL CITRATE
     Indication: Sedation
     Dosage: UNK
     Route: 065
  10. LEVOBUPIVACAINE [Concomitant]
     Active Substance: LEVOBUPIVACAINE
     Indication: Epidural analgesia
     Dosage: UNK
     Route: 065
  11. DICLOFENAC SODIUM [Concomitant]
     Active Substance: DICLOFENAC SODIUM
     Indication: Product used for unknown indication
     Dosage: 75 MILLIGRAM, QD
     Route: 065
  12. TRAMADOL HYDROCHLORIDE [Concomitant]
     Active Substance: TRAMADOL HYDROCHLORIDE
     Indication: Product used for unknown indication
     Dosage: 150 MILLIGRAM, QD
     Route: 065
  13. ACETAMINOPHEN [Concomitant]
     Active Substance: ACETAMINOPHEN
     Indication: Product used for unknown indication
     Dosage: 1300 MILLIGRAM, QD
     Route: 065
  14. ALCOHOL [Concomitant]
     Active Substance: ALCOHOL
     Indication: Nerve block
     Dosage: 10 MILLILITER
     Route: 065
  15. BUPIVACAINE [Concomitant]
     Active Substance: BUPIVACAINE
     Indication: Spinal anaesthesia
     Dosage: 1 MILLILITER
  16. PHENOL [Concomitant]
     Active Substance: PHENOL
     Indication: Product used for unknown indication
     Dosage: 0.4 MILLILITER (0.2ML + 0.2ML)
     Route: 065

REACTIONS (6)
  - Rectal cancer [Fatal]
  - Neoplasm progression [Fatal]
  - Sepsis [Unknown]
  - Dysuria [Unknown]
  - Dyspnoea [Unknown]
  - Somnolence [Unknown]
